FAERS Safety Report 10973689 (Version 1)
Quarter: 2015Q1

REPORT INFORMATION
  Report Type: Spontaneous
  Country: None (occurrence: None)
  Receive Date: 20150226
  Receipt Date: 20150226
  Transmission Date: 20150721
  Serious: No
  Sender: FDA-Public Use
  Company Number: TPA2009A02695

PATIENT
  Age: 73 Year
  Sex: Female
  Weight: 87.72 kg

DRUGS (14)
  1. ULORIC [Suspect]
     Active Substance: FEBUXOSTAT
     Indication: GOUT
     Route: 048
     Dates: start: 20090724, end: 20090909
  2. ULORIC [Suspect]
     Active Substance: FEBUXOSTAT
     Indication: BLOOD URIC ACID INCREASED
     Route: 048
     Dates: start: 20090724, end: 20090909
  3. MOTRIN [Concomitant]
     Active Substance: IBUPROFEN
  4. LISINOPRIL (LISINOPRIL) [Concomitant]
     Active Substance: LISINOPRIL
  5. LACTAID FAST ACT (TILACTASE) [Concomitant]
  6. ANTIDIARRHEAL (ALL OTHER THERAPEUTIC PRODUCTS) [Concomitant]
  7. DIAZEPAM (DIAZEPAM) [Concomitant]
     Active Substance: DIAZEPAM
  8. MAGNESIUM (MAGNESIUM) [Concomitant]
     Active Substance: MAGNESIUM
  9. DESIPRAMINE (DESIPRAMINE) (DESIPRAMINE) [Concomitant]
     Active Substance: DESIPRAMINE
  10. B COMPLEX (PYRIDOXINE HYDROCHLORIDE, THIAMINE HYDROCHLORIDE, RIBOFLAVIN, NICOTINAMIDE) [Concomitant]
  11. SUPER DIGESTIVE ENZYMES (ALL OTHER THERAPEUTICS PRODUCTS) [Concomitant]
  12. CALCIUM (CALCIUM) [Concomitant]
     Active Substance: CALCIUM
  13. DIURIL (CHLOROTHIAZIDE) [Concomitant]
  14. ZINC (ZINC) [Concomitant]

REACTIONS (7)
  - Myalgia [None]
  - Ear pain [None]
  - Headache [None]
  - Somnolence [None]
  - Visual acuity reduced [None]
  - Arthralgia [None]
  - Alopecia [None]

NARRATIVE: CASE EVENT DATE: 20090724
